FAERS Safety Report 17046469 (Version 1)
Quarter: 2019Q4

REPORT INFORMATION
  Report Type: Report from Study
  Country: US (occurrence: US)
  Receive Date: 20191119
  Receipt Date: 20191119
  Transmission Date: 20200122
  Serious: Yes (Other)
  Sender: FDA-Public Use
  Company Number: US-ROCHE-2465672

PATIENT
  Sex: Female
  Weight: 90.8 kg

DRUGS (2)
  1. OCREVUS [Suspect]
     Active Substance: OCRELIZUMAB
     Indication: RELAPSING-REMITTING MULTIPLE SCLEROSIS
     Dosage: ONGOING : YES
     Route: 042
     Dates: start: 20181129
  2. OCREVUS [Suspect]
     Active Substance: OCRELIZUMAB
     Indication: RELAPSING MULTIPLE SCLEROSIS
     Dosage: ONGOING : UNKNOWN
     Route: 065
     Dates: start: 20181218

REACTIONS (9)
  - Asthma [Unknown]
  - Tooth disorder [Unknown]
  - Pain [Unknown]
  - Memory impairment [Unknown]
  - Cellulitis [Unknown]
  - Bronchitis [Unknown]
  - Blindness [Unknown]
  - Neoplasm [Unknown]
  - Musculoskeletal pain [Not Recovered/Not Resolved]
